FAERS Safety Report 6038903-7 (Version None)
Quarter: 2009Q1

REPORT INFORMATION
  Report Type: 
  Country: None (occurrence: None)
  Receive Date: 20090114
  Receipt Date: 20090114
  Transmission Date: 20090719
  Serious: Yes (Hospitalization)
  Sender: FDA-Public Use
  Company Number: None

PATIENT
  Age: 78 Year
  Sex: Male
  Weight: 132.45 kg

DRUGS (2)
  1. LOVENOX [Suspect]
     Indication: ATRIAL FIBRILLATION
     Dosage: 120 MG BID SQ
     Route: 058
     Dates: start: 20081205, end: 20081213
  2. WARFARIN SODIUM [Suspect]

REACTIONS (2)
  - INJECTION SITE HAEMATOMA [None]
  - INTERNATIONAL NORMALISED RATIO DECREASED [None]
